FAERS Safety Report 9962350 (Version 1)
Quarter: 2014Q1

REPORT INFORMATION
  Report Type: Report from Study
  Country: US (occurrence: US)
  Receive Date: 20140305
  Receipt Date: 20140305
  Transmission Date: 20141002
  Serious: No
  Sender: FDA-Public Use
  Company Number: US-ABBVIE-13P-163-1114926-00

PATIENT
  Age: 39 Year
  Sex: Male
  Weight: 102.15 kg

DRUGS (4)
  1. HUMIRA [Suspect]
     Indication: PSORIASIS
     Dates: start: 20130601
  2. METFORMIN [Concomitant]
     Indication: PRODUCT USED FOR UNKNOWN INDICATION
     Dosage: UNKNOWN
  3. LISINOPRIL [Concomitant]
     Indication: PRODUCT USED FOR UNKNOWN INDICATION
     Dosage: UNKNOWN
  4. MULTIVITAMIN [Concomitant]
     Indication: PRODUCT USED FOR UNKNOWN INDICATION
     Dosage: UNKNOWN

REACTIONS (2)
  - Vomiting [Recovered/Resolved]
  - Nausea [Recovered/Resolved]
